FAERS Safety Report 4394614-5 (Version None)
Quarter: 2004Q3

REPORT INFORMATION
  Report Type: 
  Country: None (occurrence: None)
  Receive Date: 20040712
  Receipt Date: 20040701
  Transmission Date: 20050211
  Serious: Yes (Other)
  Sender: FDA-Public Use
  Company Number: US-ROCHE-372724

PATIENT
  Age: 61 Year
  Sex: Male
  Weight: 78.9 kg

DRUGS (3)
  1. PEG-INTERFERON ALFA 2A (RO 25-8310) [Suspect]
     Route: 058
     Dates: start: 20001217, end: 20040627
  2. RIBAVIRIN [Suspect]
     Route: 048
     Dates: start: 20001217
  3. SYNTHROID [Concomitant]
     Dosage: TOTAL DAILY DOSE REPORTED AS 0.1
     Dates: start: 20010207

REACTIONS (2)
  - IMMUNE SYSTEM DISORDER [None]
  - RENAL FAILURE [None]
